FAERS Safety Report 25979570 (Version 2)
Quarter: 2025Q4

REPORT INFORMATION
  Report Type: Spontaneous
  Country: US (occurrence: US)
  Receive Date: 20251030
  Receipt Date: 20251126
  Transmission Date: 20260117
  Serious: No
  Sender: ROCHE
  Company Number: US-ROCHE-10000416882

PATIENT
  Sex: Female
  Weight: 84.4 kg

DRUGS (2)
  1. XOLAIR PFS [Suspect]
     Active Substance: OMALIZUMAB
     Indication: Asthma
     Dosage: FORM STRENGTH: 300MG/2ML?ON 28-AUG-2025, SHE RECEIVED SUBSEQUENT DOSE AT CLINIC. ON SEP-2025 AND OCT
     Route: 058
     Dates: start: 20250731
  2. XOLAIR PFS [Suspect]
     Active Substance: OMALIZUMAB
     Indication: Urticaria

REACTIONS (3)
  - Drug ineffective [Unknown]
  - Urticaria [Recovered/Resolved]
  - Asthma [Unknown]
